FAERS Safety Report 8190321-1 (Version None)
Quarter: 2012Q1

REPORT INFORMATION
  Report Type: 
  Country: None (occurrence: None)
  Receive Date: 20120221
  Receipt Date: 20120104
  Transmission Date: 20120608
  Serious: No
  Sender: FDA-Public Use
  Company Number: 1000026733

PATIENT
  Age: 39 Year
  Sex: Female

DRUGS (8)
  1. WELLBUTRIN(BUPROPION HYDROCHLORIDE)(BUPROPION HYDROCHLORIDE) [Concomitant]
  2. GABAPENTIN [Concomitant]
  3. VIIBRYD [Suspect]
     Indication: DEPRESSION
     Dosage: 10 MG (10 MG,1 IN 1 D),ORAL,  20 MG (20 MG, 1  IN 1 D(.ORAL, 40 MG (40 MG,1 IN 1 D),ORAL
     Route: 048
     Dates: start: 20110101
  4. VIIBRYD [Suspect]
     Indication: DEPRESSION
     Dosage: 10 MG (10 MG,1 IN 1 D),ORAL,  20 MG (20 MG, 1  IN 1 D(.ORAL, 40 MG (40 MG,1 IN 1 D),ORAL
     Route: 048
     Dates: start: 20111101, end: 20110101
  5. VIIBRYD [Suspect]
     Indication: DEPRESSION
     Dosage: 10 MG (10 MG,1 IN 1 D),ORAL,  20 MG (20 MG, 1  IN 1 D(.ORAL, 40 MG (40 MG,1 IN 1 D),ORAL
     Route: 048
     Dates: start: 20110101, end: 20110101
  6. LEVOTHYROXINE(LEVOTHYROXINE SODIUM)(LEVOTHYROXINE SODIUM) [Concomitant]
  7. CLONAZEPAM [Concomitant]
  8. VISTARIL(HYDROXYZINE)(HYDROXYZINE) [Concomitant]

REACTIONS (2)
  - POLYMENORRHOEA [None]
  - METRORRHAGIA [None]
